FAERS Safety Report 4753932-9 (Version None)
Quarter: 2005Q3

REPORT INFORMATION
  Report Type: 
  Country: None (occurrence: None)
  Receive Date: 20050823
  Receipt Date: 20050713
  Transmission Date: 20060218
  Serious: No
  Sender: FDA-Public Use
  Company Number: 216102

PATIENT
  Age: 43 Year
  Sex: Male
  Weight: 117.9 kg

DRUGS (2)
  1. RAPTIVA [Suspect]
     Indication: PSORIASIS
     Dosage: 1.2 ML, 1/WEEK, SUBCUTANEOUS
     Route: 058
     Dates: end: 20050620
  2. ULTRAVATE OINTMENT (HALOBETASOL PROPIONATE) [Concomitant]

REACTIONS (2)
  - GUTTATE PSORIASIS [None]
  - PUSTULAR PSORIASIS [None]
